FAERS Safety Report 20819056 (Version 1)
Quarter: 2022Q2

REPORT INFORMATION
  Report Type: Spontaneous
  Country: US (occurrence: None)
  Receive Date: 20220511
  Receipt Date: 20220511
  Transmission Date: 20220721
  Serious: Yes (Other)
  Sender: FDA-Public Use
  Company Number: None

PATIENT
  Age: 37 Year
  Sex: Female
  Weight: 90 kg

DRUGS (8)
  1. DEXTROAMPHET SACCHARAT, AMPHET ASPARTATE, DEXTROAMPHET SULFATE AND AMP [Suspect]
     Active Substance: AMPHETAMINE ASPARTATE\AMPHETAMINE SULFATE\DEXTROAMPHETAMINE SACCHARATE\DEXTROAMPHETAMINE SULFATE
     Indication: Attention deficit hyperactivity disorder
     Dosage: OTHER QUANTITY : 60 TABLET(S);?FREQUENCY : TWICE A DAY;?
     Route: 048
     Dates: start: 20220408, end: 20220429
  2. REMICADE [Concomitant]
     Active Substance: INFLIXIMAB
  3. vitamin b shot [Concomitant]
  4. ADDERALL [Concomitant]
     Active Substance: AMPHETAMINE ASPARTATE\AMPHETAMINE SULFATE\DEXTROAMPHETAMINE SACCHARATE\DEXTROAMPHETAMINE SULFATE
  5. VENTOLIN [Concomitant]
     Active Substance: ALBUTEROL SULFATE
  6. VITAMINS [Concomitant]
     Active Substance: VITAMINS
  7. FOLIC ACID [Concomitant]
     Active Substance: FOLIC ACID
  8. VITAMIN D [Concomitant]
     Active Substance: VITAMIN D NOS

REACTIONS (8)
  - Manufacturing issue [None]
  - Product quality issue [None]
  - Hypoaesthesia [None]
  - Hypoaesthesia [None]
  - Headache [None]
  - Hypoaesthesia [None]
  - Hypoaesthesia [None]
  - Heart rate increased [None]

NARRATIVE: CASE EVENT DATE: 20220408
